FAERS Safety Report 6821232-9 (Version None)
Quarter: 2010Q3

REPORT INFORMATION
  Report Type: 
  Country: None (occurrence: None)
  Receive Date: 20100707
  Receipt Date: 20080610
  Transmission Date: 20110219
  Serious: Yes (Other)
  Sender: FDA-Public Use
  Company Number: US-PFIZER INC-2008026493

PATIENT
  Sex: Female
  Weight: 85.3 kg

DRUGS (4)
  1. ZOLOFT [Suspect]
     Indication: DEPRESSION
     Route: 048
     Dates: start: 20070101, end: 20080101
  2. ZOLOFT [Interacting]
     Indication: ANXIETY
  3. ZOLOFT [Interacting]
     Indication: IRRITABILITY
  4. LAMICTAL [Interacting]
     Indication: IRRITABILITY
     Route: 048
     Dates: start: 20080101, end: 20080101

REACTIONS (7)
  - BLINDNESS [None]
  - DIPLOPIA [None]
  - DRUG INTERACTION [None]
  - HYPNOPOMPIC HALLUCINATION [None]
  - MIGRAINE [None]
  - PANIC ATTACK [None]
  - SLEEP DISORDER [None]
